FAERS Safety Report 7323440-X (Version None)
Quarter: 2011Q1

REPORT INFORMATION
  Report Type: 
  Country: None (occurrence: None)
  Receive Date: 20110201
  Receipt Date: 20101101
  Transmission Date: 20110831
  Serious: Yes (Hospitalization)
  Sender: FDA-Public Use
  Company Number: AMAG201000398

PATIENT
  Sex: Female

DRUGS (1)
  1. FERAHEME [Suspect]
     Indication: ANAEMIA
     Dosage: 510 MG, SINGLE, INTRAVENOUS
     Route: 042
     Dates: start: 20101029, end: 20101029

REACTIONS (6)
  - SWOLLEN TONGUE [None]
  - HEADACHE [None]
  - CHEST DISCOMFORT [None]
  - HYPERSENSITIVITY [None]
  - BRONCHOSPASM [None]
  - CHEST PAIN [None]
